FAERS Safety Report 24191632 (Version 1)
Quarter: 2024Q3

REPORT INFORMATION
  Report Type: Spontaneous
  Country: US (occurrence: None)
  Receive Date: 20240808
  Receipt Date: 20240808
  Transmission Date: 20241017
  Serious: Yes (Hospitalization, Other)
  Sender: UNICHEM
  Company Number: US-Unichem Pharmaceuticals (USA) Inc-UCM202408-000984

PATIENT
  Age: 6 Year
  Sex: Female
  Weight: 24.5 kg

DRUGS (3)
  1. ALLOPURINOL [Suspect]
     Active Substance: ALLOPURINOL
     Indication: B precursor type acute leukaemia
  2. VINCRISTINE [Concomitant]
     Active Substance: VINCRISTINE
     Indication: B precursor type acute leukaemia
     Dosage: UNKNOWN
  3. DEXAMETHASONE [Concomitant]
     Active Substance: DEXAMETHASONE
     Indication: B precursor type acute leukaemia
     Dosage: UNKNOWN

REACTIONS (7)
  - Nephrocalcinosis [Unknown]
  - Nephrolithiasis [Recovered/Resolved]
  - Kidney enlargement [Unknown]
  - Acute kidney injury [Recovered/Resolved]
  - Hyperphosphataemia [Unknown]
  - Hypocalcaemia [Unknown]
  - Urinary sediment [Unknown]
